FAERS Safety Report 5753131-8 (Version None)
Quarter: 2008Q2

REPORT INFORMATION
  Report Type: 
  Country: None (occurrence: None)
  Receive Date: 20080530
  Receipt Date: 20080523
  Transmission Date: 20081010
  Serious: Yes (Other)
  Sender: FDA-Public Use
  Company Number: JP-BAYER-200810567BYL

PATIENT
  Sex: Female

DRUGS (10)
  1. ADALAT [Suspect]
     Indication: DRUG USE FOR UNKNOWN INDICATION
     Dosage: TOTAL DAILY DOSE: 20 MG  UNIT DOSE: 10 MG
     Route: 048
     Dates: start: 20080229, end: 20080325
  2. MUCOSTA [Suspect]
     Route: 048
     Dates: start: 20080229, end: 20080325
  3. GENTACIN [Suspect]
     Route: 065
  4. RASENAZOLIN [Suspect]
     Route: 065
  5. KEFPOLIN [Suspect]
     Route: 048
  6. LOXONIN [Suspect]
     Route: 065
  7. BIOFERMIN [Concomitant]
     Route: 048
     Dates: start: 20080229, end: 20080325
  8. MAGLAX [Concomitant]
     Route: 048
     Dates: start: 20080229, end: 20080325
  9. LAXOBERON [Concomitant]
     Route: 048
     Dates: start: 20080229, end: 20080325
  10. GENTACIN [Concomitant]
     Route: 065

REACTIONS (2)
  - ANAEMIA [None]
  - PLATELET COUNT DECREASED [None]
